FAERS Safety Report 9916557 (Version 3)
Quarter: 2015Q1

REPORT INFORMATION
  Report Type: Spontaneous
  Country: US (occurrence: US)
  Receive Date: 20140221
  Receipt Date: 20150203
  Transmission Date: 20150721
  Serious: Yes (Hospitalization, Other)
  Sender: FDA-Public Use
  Company Number: US-009507513-1402USA005173

PATIENT
  Sex: Female
  Weight: 75.74 kg

DRUGS (3)
  1. FOSAMAX [Suspect]
     Active Substance: ALENDRONATE SODIUM
     Indication: OSTEOPOROSIS
  2. FOSAMAX [Suspect]
     Active Substance: ALENDRONATE SODIUM
     Indication: OSTEOPENIA
     Dosage: 70 MG, UNK
     Route: 048
     Dates: end: 2006
  3. ESTROGEN NOS [Concomitant]
     Active Substance: ESTROGENS
     Dosage: UNK
     Dates: start: 1995, end: 2001

REACTIONS (22)
  - Low turnover osteopathy [Unknown]
  - Faecal incontinence [Unknown]
  - Gastrooesophageal reflux disease [Unknown]
  - Bunion operation [Unknown]
  - Cough [Unknown]
  - Urinary incontinence [Unknown]
  - Radiotherapy [Unknown]
  - Humerus fracture [Unknown]
  - Breast cancer [Unknown]
  - Cholecystectomy [Unknown]
  - Fracture nonunion [Unknown]
  - Rash [Recovered/Resolved]
  - Breast reconstruction [Unknown]
  - Cystopexy [Unknown]
  - Histoplasmosis [Unknown]
  - Mastectomy [Unknown]
  - Pulmonary mass [Unknown]
  - Foot fracture [Unknown]
  - Vitamin D deficiency [Unknown]
  - Osteosclerosis [Unknown]
  - Femur fracture [Unknown]
  - Open reduction of fracture [Unknown]

NARRATIVE: CASE EVENT DATE: 2000
